FAERS Safety Report 18328295 (Version 1)
Quarter: 2020Q3

REPORT INFORMATION
  Report Type: Spontaneous
  Country: US (occurrence: US)
  Receive Date: 20200929
  Receipt Date: 20200929
  Transmission Date: 20201103
  Serious: Yes (Disabling)
  Sender: FDA-Public Use
  Company Number: None

PATIENT
  Age: 69 Year
  Sex: Female
  Weight: 53.52 kg

DRUGS (11)
  1. VITAMIN D3 [Concomitant]
     Active Substance: CHOLECALCIFEROL
  2. PROLIA [Concomitant]
     Active Substance: DENOSUMAB
  3. MAGNESIUM OXIDE. [Concomitant]
     Active Substance: MAGNESIUM OXIDE
  4. ZEAXANTHIN [Concomitant]
     Active Substance: ZEAXANTHIN
  5. SUMATRIPTAN. [Concomitant]
     Active Substance: SUMATRIPTAN
  6. VITAMIN?B [Concomitant]
  7. MOVEFREE ULTRA [Concomitant]
  8. NATURE?THROID [Suspect]
     Active Substance: THYROID, PORCINE
     Indication: HYPOTHYROIDISM
     Dosage: ?          QUANTITY:2 DF DOSAGE FORM;?
     Route: 048
     Dates: start: 20200706, end: 20200727
  9. ARMOUR THYROID [Concomitant]
     Active Substance: THYROID, PORCINE
  10. L?SERINE [Concomitant]
  11. MEDTRONIC PACEMAKER DEFIBRILLATOR [Concomitant]
     Active Substance: DEVICE

REACTIONS (3)
  - Insomnia [None]
  - Product substitution issue [None]
  - Palpitations [None]

NARRATIVE: CASE EVENT DATE: 202007
